FAERS Safety Report 11735040 (Version 1)
Quarter: 2015Q4

REPORT INFORMATION
  Report Type: Spontaneous
  Country: RS (occurrence: RS)
  Receive Date: 20151113
  Receipt Date: 20151113
  Transmission Date: 20160304
  Serious: Yes (Hospitalization, Other)
  Sender: FDA-Public Use
  Company Number: RS-TEVA-607323ISR

PATIENT
  Age: 80 Year
  Sex: Female
  Weight: 64 kg

DRUGS (8)
  1. EUTHYROX [Concomitant]
     Active Substance: LEVOTHYROXINE SODIUM
     Indication: HYPOTHYROIDISM
     Route: 048
  2. HEMOPRES [Concomitant]
     Indication: HYPERTENSION
     Route: 048
  3. ASPIRIN PROTECT [Concomitant]
     Active Substance: ASPIRIN
     Indication: PROPHYLAXIS
     Route: 048
  4. ETOPOSIDE. [Suspect]
     Active Substance: ETOPOSIDE
     Indication: SMALL CELL LUNG CANCER
     Route: 042
     Dates: start: 201501
  5. DIFLUCAN [Concomitant]
     Active Substance: FLUCONAZOLE
     Route: 048
  6. CLOBETASOL PROPIONAT [Concomitant]
  7. PRESOLOL [Concomitant]
     Indication: HYPERTENSION
     Route: 048
  8. CISPLATIN. [Concomitant]
     Active Substance: CISPLATIN
     Indication: SMALL CELL LUNG CANCER
     Route: 042
     Dates: start: 201501

REACTIONS (6)
  - Skin erosion [Recovered/Resolved]
  - Oral mucosa erosion [Recovered/Resolved]
  - Skin lesion [Recovered/Resolved]
  - Erythema [Unknown]
  - Erythema multiforme [Recovered/Resolved]
  - Scab [Recovered/Resolved]

NARRATIVE: CASE EVENT DATE: 201503
